FAERS Safety Report 6739304-6 (Version None)
Quarter: 2010Q2

REPORT INFORMATION
  Report Type: 
  Country: None (occurrence: None)
  Receive Date: 20100517
  Receipt Date: 20091009
  Transmission Date: 20101027
  Serious: Yes (Hospitalization)
  Sender: FDA-Public Use
  Company Number: ALL1-2009-02585

PATIENT
  Age: 43 Year
  Sex: Female
  Weight: 68.9 kg

DRUGS (5)
  1. FOSRENOL [Suspect]
     Indication: HYPERPHOSPHATAEMIA
     Dosage: 1000 MG, 3XDAY:TID WITH FOOD, ORAL
     Route: 048
     Dates: start: 20090401
  2. CLONIDINE [Concomitant]
  3. METOPROLOL (METOPROLOL) [Concomitant]
  4. LISINOPRIL [Concomitant]
  5. GABAPENTIN [Concomitant]

REACTIONS (2)
  - ARTERIOVENOUS FISTULA OCCLUSION [None]
  - NAUSEA [None]
